FAERS Safety Report 16460318 (Version 1)
Quarter: 2019Q2

REPORT INFORMATION
  Report Type: Spontaneous
  Country: AU (occurrence: AU)
  Receive Date: 20190620
  Receipt Date: 20190620
  Transmission Date: 20190711
  Serious: Yes (Hospitalization, Other)
  Sender: FDA-Public Use
  Company Number: AU-MYLANLABS-2019M1057631

PATIENT
  Age: 43 Year
  Sex: Male

DRUGS (1)
  1. MINOCYCLINE [Suspect]
     Active Substance: MINOCYCLINE\MINOCYCLINE HYDROCHLORIDE
     Indication: ROSACEA
     Route: 065

REACTIONS (8)
  - Liver function test abnormal [Recovered/Resolved]
  - Pyrexia [Unknown]
  - Agranulocytosis [Recovered/Resolved]
  - Lethargy [Unknown]
  - Lymphadenopathy [Unknown]
  - Splenomegaly [Unknown]
  - Chills [Unknown]
  - Hyperhidrosis [Unknown]
